FAERS Safety Report 21671018 (Version 1)
Quarter: 2022Q4

REPORT INFORMATION
  Report Type: Spontaneous
  Country: US (occurrence: US)
  Receive Date: 20221202
  Receipt Date: 20221202
  Transmission Date: 20230112
  Serious: Yes (Hospitalization, Other)
  Sender: FDA-Public Use
  Company Number: US-CADILA HEALTHCARE LIMITED-US-ZYDUS-085103

PATIENT

DRUGS (15)
  1. BOSENTAN [Suspect]
     Active Substance: BOSENTAN
     Indication: Pulmonary arterial hypertension
     Dosage: , UNK
     Route: 048
     Dates: start: 20191029
  2. ATORVASTATIN [Concomitant]
     Active Substance: ATORVASTATIN
     Indication: Product used for unknown indication
     Dosage: , UNK
     Route: 065
  3. LEVOTHYROXIN TAB [Concomitant]
     Indication: Product used for unknown indication
     Dosage: , UNK
     Route: 065
  4. Lipitor Tab [Concomitant]
     Indication: Product used for unknown indication
     Dosage: , UNK
     Route: 065
  5. METOPROL sue  ER [Concomitant]
     Indication: Product used for unknown indication
     Dosage: , UNK
     Route: 065
  6. MORPHINE SUL TAB [Concomitant]
     Indication: Product used for unknown indication
     Dosage: UNK, UNK
     Route: 065
  7. ONDANSETRON TAB [Concomitant]
     Indication: Product used for unknown indication
     Dosage: , UNK
     Route: 065
  8. POTASSIUM TAB [Concomitant]
     Indication: Product used for unknown indication
     Dosage: , UNK
     Route: 065
  9. SILDENAFIL [Concomitant]
     Active Substance: SILDENAFIL
     Indication: Product used for unknown indication
     Dosage: , UNK
     Route: 065
  10. SPIRONOLACT TAB [Concomitant]
     Indication: Product used for unknown indication
     Dosage: , UNK
     Route: 065
  11. SUCRALFATE SUS [Concomitant]
     Indication: Product used for unknown indication
     Dosage: UNK, UNK
     Route: 065
  12. TIZANIDINE TAB [Concomitant]
     Indication: Product used for unknown indication
     Dosage: , UNK
     Route: 065
  13. TOPAMAX TAB [Concomitant]
     Indication: Product used for unknown indication
     Dosage: , UNK
     Route: 065
  14. TOPIRAMATE TAB [Concomitant]
     Indication: Product used for unknown indication
     Dosage: , UNK
     Route: 065
  15. TRAMADOL HCL TAB ER [Concomitant]
     Indication: Product used for unknown indication
     Dosage: , UNK
     Route: 065

REACTIONS (2)
  - Respiratory failure [Recovered/Resolved]
  - Product dose omission issue [Recovered/Resolved]

NARRATIVE: CASE EVENT DATE: 20221101
